FAERS Safety Report 14233530 (Version 2)
Quarter: 2017Q4

REPORT INFORMATION
  Report Type: Spontaneous
  Country: JP (occurrence: JP)
  Receive Date: 20171129
  Receipt Date: 20171208
  Transmission Date: 20180321
  Serious: Yes (Other)
  Sender: FDA-Public Use
  Company Number: JP-MYLANLABS-2017M1074624

PATIENT
  Age: 8 Decade
  Sex: Male

DRUGS (3)
  1. QUETIAPINE. [Suspect]
     Active Substance: QUETIAPINE
     Indication: DEMENTIA WITH LEWY BODIES
     Dosage: 25 MG/DAY; THEN DOSE INCREASED TO 200MG/DAY, OVER THREE MONTHS
     Route: 065
     Dates: start: 201607
  2. RIVASTIGMINE. [Concomitant]
     Active Substance: RIVASTIGMINE
     Indication: DEMENTIA WITH LEWY BODIES
     Dosage: 9-18 MG/DAY
     Route: 065
     Dates: start: 201607
  3. QUETIAPINE. [Suspect]
     Active Substance: QUETIAPINE
     Dosage: 200MG/DAY
     Route: 065
     Dates: start: 201607

REACTIONS (2)
  - Neuroleptic malignant syndrome [Recovered/Resolved]
  - Off label use [Recovered/Resolved]
